FAERS Safety Report 24848028 (Version 5)
Quarter: 2025Q1

REPORT INFORMATION
  Report Type: Spontaneous
  Country: JP (occurrence: JP)
  Receive Date: 20250116
  Receipt Date: 20250326
  Transmission Date: 20250408
  Serious: Yes (Death, Life-Threatening)
  Sender: ABBVIE
  Company Number: JP-ABBVIE-6088772

PATIENT
  Age: 76 Year
  Sex: Male
  Weight: 45 kg

DRUGS (5)
  1. RINVOQ [Suspect]
     Active Substance: UPADACITINIB
     Indication: Colitis ulcerative
     Route: 048
     Dates: start: 20241114, end: 20250106
  2. QUETIAPINE FUMARATE [Concomitant]
     Active Substance: QUETIAPINE FUMARATE
     Indication: Dementia
     Route: 048
     Dates: start: 20241127, end: 20250105
  3. VALACYCLOVIR HYDROCHLORIDE [Concomitant]
     Active Substance: VALACYCLOVIR HYDROCHLORIDE
     Indication: Cytomegalovirus enterocolitis
     Route: 041
     Dates: start: 20241121, end: 20250106
  4. GANCICLOVIR [Concomitant]
     Active Substance: GANCICLOVIR
     Indication: Cytomegalovirus infection
     Dosage: 400 MILLIGRAM
     Route: 041
     Dates: start: 20241122, end: 20241205
  5. LIALDA [Suspect]
     Active Substance: MESALAMINE
     Indication: Colitis ulcerative
     Dosage: 4800 MILLIGRAM
     Route: 048
     Dates: start: 20241114

REACTIONS (6)
  - Asphyxia [Fatal]
  - Immunodeficiency [Fatal]
  - Hypoxic-ischaemic encephalopathy [Fatal]
  - Dysphagia [Unknown]
  - Foreign body in throat [Unknown]
  - Lung abscess [Recovering/Resolving]

NARRATIVE: CASE EVENT DATE: 20241211
